FAERS Safety Report 16146193 (Version 3)
Quarter: 2019Q2

REPORT INFORMATION
  Report Type: Spontaneous
  Country: US (occurrence: US)
  Receive Date: 20190402
  Receipt Date: 20190520
  Transmission Date: 20190711
  Serious: No
  Sender: FDA-Public Use
  Company Number: US-PFIZER INC-2019130618

PATIENT
  Age: 79 Year
  Sex: Male
  Weight: 65.76 kg

DRUGS (2)
  1. GABAPENTIN. [Suspect]
     Active Substance: GABAPENTIN
     Indication: HERPES ZOSTER
     Dosage: TAKES THEM EVERY 5 HOURS
  2. GABAPENTIN. [Suspect]
     Active Substance: GABAPENTIN
     Indication: MYALGIA
     Dosage: 600 MG, 3X/DAY(2 CAPSULES 3 TIMES DAILY)
     Route: 048
     Dates: start: 201703

REACTIONS (3)
  - Drug ineffective [Unknown]
  - Pain [Unknown]
  - Intentional product misuse [Unknown]
